FAERS Safety Report 9849042 (Version 1)
Quarter: 2014Q1

REPORT INFORMATION
  Report Type: Spontaneous
  Country: US (occurrence: None)
  Receive Date: 20140127
  Receipt Date: 20140127
  Transmission Date: 20141002
  Serious: Yes (Other)
  Sender: FDA-Public Use
  Company Number: None

PATIENT
  Age: 39 Year
  Sex: Male
  Weight: 128.37 kg

DRUGS (1)
  1. LOVASTATIN [Suspect]
     Indication: BLOOD PRESSURE
     Dosage: TAKEN BY MOUTH
     Dates: start: 20131120, end: 20131120

REACTIONS (1)
  - Influenza like illness [None]
